FAERS Safety Report 6028770-X (Version None)
Quarter: 2009Q1

REPORT INFORMATION
  Report Type: 
  Country: None (occurrence: None)
  Receive Date: 20090105
  Receipt Date: 20090105
  Transmission Date: 20090719
  Serious: Yes (Hospitalization)
  Sender: FDA-Public Use
  Company Number: None

PATIENT
  Age: 38 Year
  Sex: Female
  Weight: 84.4 kg

DRUGS (2)
  1. ENOXAPARIN SODIUM [Suspect]
     Indication: THROMBOSIS PROPHYLAXIS
     Dosage: 100 MG BID SQ
     Route: 058
     Dates: start: 20080716, end: 20080723
  2. WARFARIN SODIUM [Suspect]
     Dosage: 10 MG  PO
     Route: 048
     Dates: start: 20080718, end: 20080723

REACTIONS (5)
  - COAGULATION TIME PROLONGED [None]
  - HAEMOGLOBIN DECREASED [None]
  - HAEMORRHAGIC CYST [None]
  - INTERNATIONAL NORMALISED RATIO INCREASED [None]
  - PERITONEAL HAEMORRHAGE [None]
